FAERS Safety Report 9478601 (Version 1)
Quarter: 2013Q3

REPORT INFORMATION
  Report Type: Spontaneous
  Country: IT (occurrence: IT)
  Receive Date: 20130827
  Receipt Date: 20130827
  Transmission Date: 20140515
  Serious: Yes (Disabling)
  Sender: FDA-Public Use
  Company Number: IT-TEVA-427576ISR

PATIENT
  Age: 56 Year
  Sex: Male

DRUGS (6)
  1. CARBIDOPA AND LEVODOPA [Suspect]
     Indication: PARKINSON^S DISEASE
     Dosage: LEVODOPA 100MG/CARBIDOPA 25MG FOUR TIMES DAILY
     Route: 065
  2. LEVODOPA [Suspect]
     Indication: PARKINSON^S DISEASE
     Dosage: 50-400MG
     Route: 065
  3. LEVODOPA [Suspect]
     Indication: PARKINSON^S DISEASE
     Dosage: 50-150MG DAILY
     Route: 065
  4. LEVODOPA [Suspect]
     Indication: PARKINSON^S DISEASE
     Dosage: 300 MILLIGRAM DAILY;
     Route: 065
  5. PRAMIPEXOLE [Concomitant]
     Indication: PARKINSON^S DISEASE
     Dosage: 3 MILLIGRAM DAILY;
     Route: 065
  6. RASAGILINE [Concomitant]
     Indication: PARKINSON^S DISEASE
     Dosage: 1 MILLIGRAM DAILY;
     Route: 065

REACTIONS (3)
  - Dystonia [Recovered/Resolved]
  - Dyskinesia [Unknown]
  - Syncope [Unknown]
